FAERS Safety Report 11386664 (Version 30)
Quarter: 2018Q1

REPORT INFORMATION
  Report Type: Spontaneous
  Country: US (occurrence: US)
  Receive Date: 20150817
  Receipt Date: 20180319
  Transmission Date: 20180508
  Serious: Yes (Hospitalization, Disabling, Other)
  Sender: FDA-Public Use
  Company Number: US-JNJFOC-20150807863

PATIENT
  Age: 42 Year
  Sex: Male

DRUGS (2)
  1. RISPERDAL [Suspect]
     Active Substance: RISPERIDONE
     Indication: SCHIZOPHRENIA
     Dosage: AT NOON
     Route: 048
     Dates: start: 1993, end: 1996
  2. RISPERDAL [Suspect]
     Active Substance: RISPERIDONE
     Indication: SCHIZOPHRENIA
     Dosage: AT NIGHT
     Route: 048
     Dates: start: 1993, end: 1996

REACTIONS (40)
  - Feeling hot [Unknown]
  - Headache [Not Recovered/Not Resolved]
  - Hallucination, auditory [Unknown]
  - Adverse event [Not Recovered/Not Resolved]
  - Malaise [Not Recovered/Not Resolved]
  - Muscle spasms [Unknown]
  - Disability [Not Recovered/Not Resolved]
  - Breast pain [Not Recovered/Not Resolved]
  - Lacrimation increased [Unknown]
  - Agitation [Not Recovered/Not Resolved]
  - Fall [Unknown]
  - Haematemesis [Unknown]
  - Suicidal ideation [Unknown]
  - Hospitalisation [Unknown]
  - Gynaecomastia [Not Recovered/Not Resolved]
  - Emotional distress [Not Recovered/Not Resolved]
  - Scar [Not Recovered/Not Resolved]
  - Pain [Not Recovered/Not Resolved]
  - Feeling abnormal [Unknown]
  - Hypertension [Unknown]
  - Abdominal pain upper [Not Recovered/Not Resolved]
  - Oedema peripheral [Unknown]
  - Crying [Unknown]
  - Fatigue [Not Recovered/Not Resolved]
  - Weight increased [Unknown]
  - Lymphadenopathy [Unknown]
  - Unevaluable event [Unknown]
  - Myocardial infarction [Unknown]
  - Depression [Unknown]
  - Weight decreased [Unknown]
  - Dizziness [Not Recovered/Not Resolved]
  - Chest pain [Not Recovered/Not Resolved]
  - Asthenia [Unknown]
  - Frustration tolerance decreased [Unknown]
  - Rhinorrhoea [Unknown]
  - Dyspnoea [Not Recovered/Not Resolved]
  - Schizophrenia [Unknown]
  - Aggression [Unknown]
  - Mental disorder [Unknown]
  - Irritability [Unknown]

NARRATIVE: CASE EVENT DATE: 1997
